FAERS Safety Report 25046773 (Version 1)
Quarter: 2025Q1

REPORT INFORMATION
  Report Type: Other
  Country: NL (occurrence: NL)
  Receive Date: 20250306
  Receipt Date: 20250306
  Transmission Date: 20250409
  Serious: Yes (Life-Threatening, Hospitalization, Other)
  Sender: SPECTRA MEDICAL DEVICES, LLC
  Company Number: NL-Spectra Medical Devices, LLC-2172358

PATIENT
  Sex: Female

DRUGS (1)
  1. LIDOCAINE HYDROCHLORIDE [Suspect]
     Active Substance: LIDOCAINE HYDROCHLORIDE
     Indication: Epidural analgesia

REACTIONS (5)
  - Respiratory failure [Unknown]
  - Product use in unapproved indication [Unknown]
  - Maternal exposure during delivery [Unknown]
  - Hypotension [Unknown]
  - Dysphagia [Unknown]
